FAERS Safety Report 5874087-3 (Version None)
Quarter: 2008Q3

REPORT INFORMATION
  Report Type: 
  Country: None (occurrence: None)
  Receive Date: 20080829
  Receipt Date: 20060726
  Transmission Date: 20090109
  Serious: Yes (Other)
  Sender: FDA-Public Use
  Company Number: 2008S1011334

PATIENT
  Age: 6 Month
  Sex: Male

DRUGS (3)
  1. CLARITHROMYCIN [Suspect]
     Indication: HELICOBACTER INFECTION
     Dosage: 500 MG
     Dates: start: 20050310, end: 20050317
  2. AMOXICILLIN [Suspect]
     Indication: HELICOBACTER INFECTION
     Dosage: 500 MG
     Dates: start: 20050310, end: 20050317
  3. LANSOPRAZOLE [Suspect]
     Indication: HELICOBACTER INFECTION
     Dosage: 30 MG
     Dates: start: 20050310, end: 20050317

REACTIONS (1)
  - ANKYLOGLOSSIA CONGENITAL [None]
